FAERS Safety Report 4576463-8 (Version None)
Quarter: 2005Q1

REPORT INFORMATION
  Report Type: 
  Country: None (occurrence: None)
  Receive Date: 20050207
  Receipt Date: 20050124
  Transmission Date: 20050727
  Serious: Yes (Other)
  Sender: FDA-Public Use
  Company Number: 2004113755

PATIENT
  Age: 45 Year
  Sex: Male
  Weight: 83.9154 kg

DRUGS (5)
  1. NORVASC [Suspect]
     Indication: HEADACHE
     Dosage: 10 MG (10 MG, 1 IN 1 D), ORAL
     Route: 048
     Dates: start: 19990101
  2. OXYCODONE                (0XYCODONE) [Concomitant]
  3. ROSUVASTATIN                 (ROSUVASTATIN) [Concomitant]
  4. RABEPRAZOLE SODIUM [Concomitant]
  5. CLONAZEPAM [Concomitant]

REACTIONS (2)
  - HEADACHE [None]
  - IMPAIRED HEALING [None]
